FAERS Safety Report 10108761 (Version 2)
Quarter: 2014Q2

REPORT INFORMATION
  Report Type: Spontaneous
  Country: PT (occurrence: PT)
  Receive Date: 20140425
  Receipt Date: 20140504
  Transmission Date: 20141212
  Serious: Yes (Life-Threatening, Hospitalization)
  Sender: FDA-Public Use
  Company Number: PT-BRISTOL-MYERS SQUIBB COMPANY-20641767

PATIENT
  Age: 75 Year
  Sex: Male
  Weight: 85 kg

DRUGS (8)
  1. RISIDON [Suspect]
     Indication: DIABETES MELLITUS
     Dosage: FILM COATED TABS?24JAN14
     Route: 048
     Dates: end: 20140124
  2. METFORMIN HCL [Suspect]
     Indication: DIABETES MELLITUS
     Dosage: 24JAN14
     Route: 048
     Dates: end: 20140124
  3. LANOXIN [Concomitant]
     Indication: ATRIAL FIBRILLATION
     Dosage: LANOXIN MD
     Route: 048
  4. FENOFIBRATE [Concomitant]
     Indication: DYSLIPIDAEMIA
     Route: 048
  5. BISOPROLOL [Concomitant]
     Indication: CARDIAC FAILURE CHRONIC
     Route: 048
  6. CANDESARTAN [Concomitant]
     Indication: CARDIAC FAILURE CHRONIC
     Route: 048
  7. FUROSEMIDE [Concomitant]
     Indication: CARDIAC FAILURE CHRONIC
  8. ESPIRONOLACTONA [Concomitant]
     Indication: CARDIAC FAILURE CHRONIC
     Route: 048

REACTIONS (5)
  - Toxicity to various agents [Recovered/Resolved]
  - Hypotension [Recovered/Resolved]
  - Lactic acidosis [Recovered/Resolved]
  - Overdose [Recovered/Resolved]
  - Medication error [Unknown]
